FAERS Safety Report 21703057 (Version 1)
Quarter: 2022Q4

REPORT INFORMATION
  Report Type: Spontaneous
  Country: US (occurrence: US)
  Receive Date: 20221209
  Receipt Date: 20221209
  Transmission Date: 20230113
  Serious: No
  Sender: FDA-Public Use
  Company Number: US-drreddys-SPO/USA/22/0157552

PATIENT
  Age: 18 Year

DRUGS (1)
  1. ZENATANE [Suspect]
     Active Substance: ISOTRETINOIN
     Indication: Acne
     Dosage: RMA ISSUE DATE: 05/MAY/2022 01:37:58 PM, 10/JUNE/2022 03:57:59 PM, 14/JULY/2022 05:59:05 PM, 05:59:4

REACTIONS (1)
  - Treatment noncompliance [Unknown]
